FAERS Safety Report 12419725 (Version 2)
Quarter: 2016Q2

REPORT INFORMATION
  Report Type: Spontaneous
  Country: JP (occurrence: JP)
  Receive Date: 20160531
  Receipt Date: 20160607
  Transmission Date: 20160815
  Serious: Yes (Other)
  Sender: FDA-Public Use
  Company Number: JP-GLAXOSMITHKLINE-JP2016JPN064646

PATIENT
  Age: 89 Year
  Sex: Male
  Weight: 48 kg

DRUGS (11)
  1. PLETAAL [Concomitant]
     Active Substance: CILOSTAZOL
     Dosage: UNK
  2. AVOLVE [Suspect]
     Active Substance: DUTASTERIDE
     Indication: BENIGN PROSTATIC HYPERPLASIA
     Dosage: 0.5 MG, QD
     Route: 048
     Dates: start: 20160318, end: 20160323
  3. AVOLVE [Suspect]
     Active Substance: DUTASTERIDE
     Indication: POLLAKIURIA
  4. MAGMITT [Concomitant]
     Active Substance: MAGNESIUM OXIDE
     Dosage: UNK
  5. JUVELA N [Concomitant]
     Active Substance: TOCOPHERYL NICOTINATE, D-.ALPHA.
     Dosage: UNK
  6. BAYASPIRIN [Concomitant]
     Active Substance: ASPIRIN
     Dosage: UNK
  7. PERSANTIN [Concomitant]
     Active Substance: DIPYRIDAMOLE
     Dosage: UNK
  8. CELECOX [Concomitant]
     Active Substance: CELECOXIB
     Dosage: UNK
  9. LENDORMIN [Concomitant]
     Active Substance: BROTIZOLAM
     Dosage: UNK
  10. GASTER [Concomitant]
     Active Substance: FAMOTIDINE
     Dosage: UNK
  11. ADALAT [Concomitant]
     Active Substance: NIFEDIPINE
     Dosage: UNK

REACTIONS (1)
  - Palpitations [Recovered/Resolved]

NARRATIVE: CASE EVENT DATE: 20160318
